FAERS Safety Report 10008257 (Version 3)
Quarter: 2014Q1

REPORT INFORMATION
  Report Type: Spontaneous
  Country: CA (occurrence: CA)
  Receive Date: 20140313
  Receipt Date: 20140327
  Transmission Date: 20141002
  Serious: Yes (Disabling, Other)
  Sender: FDA-Public Use
  Company Number: CA-009507513-1403CAN005248

PATIENT
  Sex: Male

DRUGS (3)
  1. VICTRELIS [Suspect]
     Indication: CHRONIC HEPATITIS C
     Dosage: 800 MG, 3 TIMES IN 1 DAY
     Route: 048
  2. PEGASYS [Suspect]
     Indication: CHRONIC HEPATITIS C
     Dosage: 180 MICROGRAM, 1 IN 1 WEEK (0.5 ML PROCLICK PRE-FILLED SYRINGE)
     Route: 058
     Dates: start: 20131018, end: 20140302
  3. COPEGUS [Suspect]
     Indication: CHRONIC HEPATITIS C
     Dosage: 1000 MG, 1 IN 1 DAY, 35 TABLETS/WEEK
     Route: 048
     Dates: start: 20131018, end: 20140302

REACTIONS (6)
  - General physical health deterioration [Unknown]
  - Surgery [Unknown]
  - Retinal toxicity [Unknown]
  - Tooth disorder [Unknown]
  - Retinopathy [Unknown]
  - Therapeutic product ineffective [Unknown]
